FAERS Safety Report 6816891-0 (Version None)
Quarter: 2010Q3

REPORT INFORMATION
  Report Type: 
  Country: None (occurrence: None)
  Receive Date: 20100706
  Receipt Date: 20100628
  Transmission Date: 20110219
  Serious: Yes (Other)
  Sender: FDA-Public Use
  Company Number: GB-ASTRAZENECA-2010SE30055

PATIENT
  Age: 68 Year
  Sex: Female
  Weight: 90 kg

DRUGS (5)
  1. ROSUVASTATIN [Suspect]
     Route: 048
     Dates: start: 20081128, end: 20081202
  2. SIMVASTATIN [Suspect]
     Route: 048
     Dates: start: 20060301, end: 20080829
  3. ASPIRIN [Concomitant]
     Indication: ISCHAEMIC HEART DISEASE PROPHYLAXIS
     Route: 048
     Dates: start: 20001128
  4. BENDROFLUMETHIAZIDE [Concomitant]
     Indication: HYPERTENSION
     Route: 048
     Dates: start: 20040719
  5. LISINOPRIL [Concomitant]
     Indication: HYPERTENSION
     Route: 048
     Dates: start: 20010511

REACTIONS (2)
  - COUGH [None]
  - TACHYCARDIA [None]
